FAERS Safety Report 4390244-X (Version None)
Quarter: 2004Q2

REPORT INFORMATION
  Report Type: 
  Country: None (occurrence: None)
  Receive Date: 20040630
  Receipt Date: 20040615
  Transmission Date: 20050107
  Serious: Yes (Hospitalization, Other)
  Sender: FDA-Public Use
  Company Number: JP-JNJFOC-20040502107

PATIENT
  Age: 39 Year
  Sex: Male

DRUGS (15)
  1. LEUSTATIN [Suspect]
     Indication: HAIRY CELL LEUKAEMIA
     Dosage: 8 MG, IN 1 DAY, INTRAVENOUS DRIP
     Route: 041
     Dates: start: 20030926, end: 20030930
  2. MICAFUNGIN SODIUM (ALL OTHER THERAPEUTIC PRODUCTS) UNSPECIFIED [Concomitant]
     Indication: PYREXIA
     Dosage: 150 MG, IN 1 DAY, INTRAVENOUS DRIP
     Route: 041
     Dates: start: 20031020, end: 20031104
  3. MICAFUNGIN SODIUM (ALL OTHER THERAPEUTIC PRODUCTS) UNSPECIFIED [Concomitant]
     Indication: PYREXIA
     Dosage: 150 MG, IN 1 DAY, INTRAVENOUS DRIP
     Route: 041
     Dates: start: 20031110, end: 20031114
  4. AMIKACIN SULFATE [Suspect]
     Indication: PYREXIA
     Dosage: 400 MG, IN 1 DAY, INTRAVENOUS DRIP
     Route: 041
     Dates: start: 20031018, end: 20031104
  5. AMIKACIN SULFATE [Suspect]
     Indication: PYREXIA
     Dosage: 400 MG, IN 1 DAY, INTRAVENOUS DRIP
     Route: 041
     Dates: start: 20031110, end: 20031121
  6. FLUCONAZOLE (FLUCONAZOLE) UNSPECIFIED [Concomitant]
  7. BACTRIM [Suspect]
  8. ZOPICLONE (ZOPICLONE) UNSPECIFIED [Concomitant]
  9. LOXOPROFEN SODIUM (LOXOPROFEN SODIUM) UNSPECIFIED [Concomitant]
  10. TEPRENONE (TEPRENONE) UNSPECIFIED [Concomitant]
  11. CEFOZOPRAN HYDROCHLORIDE (CEFOZOPRAN HYDROCHLORIDE) [Concomitant]
  12. MEROPENEM TRIHYDRATE (MEROPENEM) UNSPECIFIED [Concomitant]
  13. FAMOTIDINE (FAMOTIDINE) UNSPECIFIED [Concomitant]
  14. CEFTAZIDIME (CEFTAZIDIME) UNSPECIFIED [Concomitant]
  15. MINOCYCLINE HYDROCHLORIDE (MINOCYCLINE HYDROCHLORIDE) UNSPECIFIED [Concomitant]

REACTIONS (17)
  - ANAEMIA [None]
  - ANXIETY [None]
  - BLOOD CHLORIDE DECREASED [None]
  - BLOOD SODIUM DECREASED [None]
  - C-REACTIVE PROTEIN INCREASED [None]
  - DIFFERENTIAL WHITE BLOOD CELL COUNT ABNORMAL [None]
  - ELECTROLYTE IMBALANCE [None]
  - GASTRITIS [None]
  - HEPATIC STEATOSIS [None]
  - HEPATOCELLULAR DAMAGE [None]
  - HYPOALBUMINAEMIA [None]
  - HYPOCALCAEMIA [None]
  - HYPOPROTEINAEMIA [None]
  - INSOMNIA [None]
  - PYREXIA [None]
  - THROMBOCYTOPENIA [None]
  - WHITE BLOOD CELL COUNT DECREASED [None]
